FAERS Safety Report 21549455 (Version 1)
Quarter: 2022Q4

REPORT INFORMATION
  Report Type: Spontaneous
  Country: CN (occurrence: CN)
  Receive Date: 20221103
  Receipt Date: 20221103
  Transmission Date: 20230113
  Serious: Yes (Hospitalization)
  Sender: FDA-Public Use
  Company Number: CN-PFIZER INC-PV202200092782

PATIENT
  Age: 8 Year
  Sex: Male
  Weight: 29 kg

DRUGS (2)
  1. SOLU-MEDROL [Suspect]
     Active Substance: METHYLPREDNISOLONE SODIUM SUCCINATE
     Indication: Myelitis
     Dosage: 0.43 G, 1X/DAY
     Route: 041
     Dates: start: 20220318, end: 20220320
  2. DEXTROSE [Concomitant]
     Active Substance: DEXTROSE
     Indication: Myelitis
     Dosage: 250 ML, 1X/DAY
     Route: 041
     Dates: start: 20220320, end: 20220320

REACTIONS (3)
  - Hepatic function abnormal [Recovering/Resolving]
  - Hypertriglyceridaemia [Recovering/Resolving]
  - White blood cell count increased [Recovering/Resolving]

NARRATIVE: CASE EVENT DATE: 20220321
